FAERS Safety Report 16992868 (Version 2)
Quarter: 2019Q4

REPORT INFORMATION
  Report Type: Report from Study
  Country: NL (occurrence: NL)
  Receive Date: 20191105
  Receipt Date: 20191108
  Transmission Date: 20200122
  Serious: Yes (Hospitalization)
  Sender: FDA-Public Use
  Company Number: NL-ROCHE-2451784

PATIENT
  Age: 36 Year
  Sex: Female

DRUGS (5)
  1. PERTUZUMAB. [Suspect]
     Active Substance: PERTUZUMAB
     Indication: HER-2 POSITIVE BREAST CANCER
     Dosage: MOST CURRENT DOSE ADMINISTERED ON 16/OCT/2019
     Route: 042
     Dates: start: 20190925
  2. TRASTUZUMAB. [Suspect]
     Active Substance: TRASTUZUMAB
     Indication: HER-2 POSITIVE BREAST CANCER
     Dosage: MOST CURRENT DOSE ADMINISTERED ON 16/OCT/2019
     Route: 042
     Dates: start: 20190925
  3. CARBOPLATIN. [Suspect]
     Active Substance: CARBOPLATIN
     Indication: HER-2 POSITIVE BREAST CANCER
     Dosage: MOST CURRENT DOSE ADMINISTERED ON 16/OCT/2019
     Route: 042
     Dates: start: 20190925
  4. DEXAMETHASONE. [Concomitant]
     Active Substance: DEXAMETHASONE
     Route: 065
     Dates: start: 20191016, end: 20191019
  5. PACLITAXEL. [Suspect]
     Active Substance: PACLITAXEL
     Indication: HER-2 POSITIVE BREAST CANCER
     Dosage: MOST CURRENT DOSE ADMINISTERED ON 16/OCT/2019
     Route: 042
     Dates: start: 20190925

REACTIONS (1)
  - Malaise [Not Recovered/Not Resolved]

NARRATIVE: CASE EVENT DATE: 20191019
